FAERS Safety Report 9889687 (Version 2)
Quarter: 2014Q1

REPORT INFORMATION
  Report Type: Spontaneous
  Country: FR (occurrence: FR)
  Receive Date: 20140211
  Receipt Date: 20140217
  Transmission Date: 20141002
  Serious: Yes (Life-Threatening, Hospitalization)
  Sender: FDA-Public Use
  Company Number: FR-PFIZER INC-2014037632

PATIENT
  Age: 69 Year
  Sex: Male

DRUGS (6)
  1. CORDARONE [Suspect]
     Indication: ATRIAL FIBRILLATION
     Dosage: 200 MG, DAILY
     Route: 048
     Dates: start: 20091201, end: 20131007
  2. PREVISCAN [Concomitant]
     Dosage: UNK
  3. KALEORID [Concomitant]
     Dosage: UNK
  4. LASILIX [Concomitant]
     Dosage: UNK
  5. COVERAM [Concomitant]
     Dosage: UNK
  6. INEXIUM [Concomitant]
     Dosage: UNK

REACTIONS (6)
  - Acute pulmonary oedema [Not Recovered/Not Resolved]
  - Cardiac failure [Not Recovered/Not Resolved]
  - Hyperthyroidism [Unknown]
  - Acute respiratory failure [Not Recovered/Not Resolved]
  - Dyspnoea [Unknown]
  - Haemoglobin decreased [Unknown]
